FAERS Safety Report 11844881 (Version 2)
Quarter: 2016Q1

REPORT INFORMATION
  Report Type: Spontaneous
  Country: US (occurrence: US)
  Receive Date: 20151217
  Receipt Date: 20160205
  Transmission Date: 20160526
  Serious: Yes (Other)
  Sender: FDA-Public Use
  Company Number: US-BAYER-2015-487395

PATIENT
  Age: 22 Year
  Sex: Female
  Weight: 63.49 kg

DRUGS (1)
  1. SKYLA [Suspect]
     Active Substance: LEVONORGESTREL
     Indication: CONTRACEPTION
     Dosage: 14 MCG/24HR, CONT
     Route: 015
     Dates: start: 20151111, end: 20151209

REACTIONS (3)
  - Procedural pain [None]
  - Post procedural discomfort [None]
  - Device dislocation [None]

NARRATIVE: CASE EVENT DATE: 20151111
